FAERS Safety Report 9354362 (Version 1)
Quarter: 2013Q2

REPORT INFORMATION
  Report Type: Spontaneous
  Country: IT (occurrence: None)
  Receive Date: 20130613
  Receipt Date: 20130613
  Transmission Date: 20140414
  Serious: Yes (Death)
  Sender: FDA-Public Use
  Company Number: AUR-APL-2013-04860

PATIENT
  Age: 15 Year
  Sex: Male

DRUGS (4)
  1. CEFTRIAXONE (CEFTRIAXONE) [Suspect]
     Indication: EVIDENCE BASED TREATMENT
     Route: 042
  2. DEXAMETHASONE SODIUM PHOSPHATE [Suspect]
     Indication: EVIDENCE BASED TREATMENT
  3. AMIKACIN (AMIKACIN) [Suspect]
     Indication: EVIDENCE BASED TREATMENT
  4. MANNITOL [Concomitant]

REACTIONS (10)
  - Neurological decompensation [None]
  - Coma [None]
  - Brain herniation [None]
  - Intracranial pressure increased [None]
  - Brain oedema [None]
  - Bacillus test positive [None]
  - Fusobacterium test positive [None]
  - Pathogen resistance [None]
  - Brain death [None]
  - Drug ineffective [None]
